FAERS Safety Report 5689391-1 (Version None)
Quarter: 2008Q1

REPORT INFORMATION
  Report Type: 
  Country: None (occurrence: None)
  Receive Date: 20080328
  Receipt Date: 20080324
  Transmission Date: 20080703
  Serious: Yes (Hospitalization)
  Sender: FDA-Public Use
  Company Number: TPA2007A02561

PATIENT
  Age: 64 Year
  Sex: Female
  Weight: 91.1 kg

DRUGS (7)
  1. PIOGLITAZONE HCL [Suspect]
     Indication: GLUCOSE TOLERANCE IMPAIRED
     Dosage: 1 IN 1 D, PER ORAL
     Route: 048
     Dates: start: 20060208
  2. HYZAAR [Concomitant]
  3. SULAR [Concomitant]
  4. ASPIRIN [Concomitant]
  5. LABETALOL HCL [Concomitant]
  6. CLONIDINE [Concomitant]
  7. SPIRONOLACTONE [Concomitant]

REACTIONS (6)
  - ABDOMINAL PAIN [None]
  - BLOOD PRESSURE INCREASED [None]
  - DIARRHOEA [None]
  - HEART RATE DECREASED [None]
  - HEART RATE INCREASED [None]
  - NAUSEA [None]
